FAERS Safety Report 16343867 (Version 3)
Quarter: 2019Q3

REPORT INFORMATION
  Report Type: Spontaneous
  Country: US (occurrence: US)
  Receive Date: 20190522
  Receipt Date: 20190719
  Transmission Date: 20191004
  Serious: No
  Sender: FDA-Public Use
  Company Number: US-PFIZER INC-2019216978

PATIENT
  Age: 52 Year
  Sex: Female

DRUGS (1)
  1. XELJANZ [Suspect]
     Active Substance: TOFACITINIB CITRATE
     Indication: RHEUMATOID ARTHRITIS
     Dosage: 5 MG, UNK
     Dates: start: 20190417

REACTIONS (2)
  - Stress at work [Unknown]
  - Condition aggravated [Unknown]

NARRATIVE: CASE EVENT DATE: 201905
